FAERS Safety Report 5067800-9 (Version None)
Quarter: 2006Q3

REPORT INFORMATION
  Report Type: 
  Country: None (occurrence: None)
  Receive Date: 20060802
  Receipt Date: 20060725
  Transmission Date: 20061208
  Serious: Yes (Death)
  Sender: FDA-Public Use
  Company Number: JP-JPN-A200602807

PATIENT
  Sex: Male

DRUGS (6)
  1. PAXIL [Suspect]
     Indication: DRUG USE FOR UNKNOWN INDICATION
     Dosage: 20MG PER DAY
     Route: 048
     Dates: start: 20060607, end: 20060625
  2. ANAFRANIL [Concomitant]
     Route: 065
     Dates: end: 20060626
  3. SERENACE [Concomitant]
     Route: 065
     Dates: end: 20060626
  4. LEVOTOMIN [Concomitant]
     Route: 065
     Dates: end: 20060626
  5. LEXOTAN [Concomitant]
     Route: 048
     Dates: end: 20060626
  6. DIAZEPAM [Concomitant]

REACTIONS (2)
  - COMPLETED SUICIDE [None]
  - SELF INJURIOUS BEHAVIOUR [None]
